FAERS Safety Report 19843029 (Version 1)
Quarter: 2021Q3

REPORT INFORMATION
  Report Type: Spontaneous
  Country: IT (occurrence: IT)
  Receive Date: 20210917
  Receipt Date: 20210917
  Transmission Date: 20211014
  Serious: Yes (Death)
  Sender: FDA-Public Use
  Company Number: IT-VALIDUS PHARMACEUTICALS LLC-IT-VDP-2021-001536

PATIENT
  Age: 83 Year
  Sex: Female
  Weight: 70 kg

DRUGS (3)
  1. POTASSIUM CANRENOATE [Concomitant]
     Active Substance: CANRENOATE POTASSIUM
     Indication: CARDIAC FAILURE CONGESTIVE
     Dosage: UNK
     Route: 065
     Dates: start: 20210614, end: 20210623
  2. ZAROXOLYN [Suspect]
     Active Substance: METOLAZONE
     Indication: PRODUCT USED FOR UNKNOWN INDICATION
     Dosage: 5 MG, QD
     Route: 048
     Dates: start: 20210615, end: 20210624
  3. LASIX [Suspect]
     Active Substance: FUROSEMIDE
     Indication: CARDIAC FAILURE CONGESTIVE
     Dosage: SOLUTION FOR INJECTION, 250 MG, QD
     Route: 042
     Dates: start: 20210614, end: 20210617

REACTIONS (1)
  - Hyponatraemic syndrome [Fatal]

NARRATIVE: CASE EVENT DATE: 20210620
